FAERS Safety Report 11754550 (Version 1)
Quarter: 2015Q4

REPORT INFORMATION
  Report Type: Spontaneous
  Country: US (occurrence: US)
  Receive Date: 20151119
  Receipt Date: 20151119
  Transmission Date: 20160304
  Serious: Yes (Hospitalization, Other)
  Sender: FDA-Public Use
  Company Number: US-BAUSCH-BL-2015-022592

PATIENT
  Age: 74 Year
  Sex: Male

DRUGS (1)
  1. PROVENGE [Suspect]
     Active Substance: SIPULEUCEL-T
     Indication: PROSTATE CANCER METASTATIC
     Route: 042
     Dates: start: 20150921, end: 20150921

REACTIONS (3)
  - Hospitalisation [Not Recovered/Not Resolved]
  - Culture positive [Unknown]
  - Catheter site infection [Unknown]

NARRATIVE: CASE EVENT DATE: 2015
